FAERS Safety Report 19392919 (Version 3)
Quarter: 2025Q2

REPORT INFORMATION
  Report Type: Spontaneous
  Country: IT (occurrence: IT)
  Receive Date: 20210609
  Receipt Date: 20250626
  Transmission Date: 20250716
  Serious: Yes (Other)
  Sender: AUROBINDO
  Company Number: IT-ATNAHS LIMITED-ATNAHS20210501806

PATIENT
  Age: 56 Year
  Sex: Female

DRUGS (1)
  1. KETOROLAC [Suspect]
     Active Substance: KETOROLAC TROMETHAMINE
     Indication: Back pain
     Route: 030

REACTIONS (5)
  - Neurotoxicity [Unknown]
  - Peroneal nerve injury [Unknown]
  - Injection site nerve damage [Unknown]
  - Hypoaesthesia [Unknown]
  - Off label use [Unknown]
